FAERS Safety Report 8962526 (Version 1)
Quarter: 2012Q4

REPORT INFORMATION
  Report Type: 
  Country: CN (occurrence: CN)
  Receive Date: 20121214
  Receipt Date: 20121214
  Transmission Date: 20130627
  Serious: Yes (Other)
  Sender: FDA-Public Use
  Company Number: CN-SANOFI-AVENTIS-2012SA090944

PATIENT
  Sex: Male

DRUGS (1)
  1. LANTUS [Suspect]
     Indication: DIABETES MELLITUS
     Route: 058
     Dates: start: 20110510

REACTIONS (4)
  - Hypoventilation [Recovering/Resolving]
  - Asthenia [Recovering/Resolving]
  - Mental disorder [Recovering/Resolving]
  - Blood glucose abnormal [Recovering/Resolving]
